FAERS Safety Report 4804237-9 (Version None)
Quarter: 2005Q4

REPORT INFORMATION
  Report Type: 
  Country: None (occurrence: None)
  Receive Date: 20051017
  Receipt Date: 20050914
  Transmission Date: 20060501
  Serious: Yes (Hospitalization)
  Sender: FDA-Public Use
  Company Number: 2005RR-00752

PATIENT
  Age: 58 Year
  Sex: Male

DRUGS (3)
  1. ASPIRIN [Suspect]
     Indication: PROPHYLAXIS
     Dosage: 75 MG, QD, ORAL
     Route: 048
     Dates: start: 20030101, end: 20050820
  2. ATENOLOL [Concomitant]
  3. IRBESARTAN [Concomitant]

REACTIONS (6)
  - BARRETT'S OESOPHAGUS [None]
  - DIZZINESS [None]
  - DUODENAL ULCER [None]
  - FALL [None]
  - MELAENA [None]
  - SYNCOPE [None]
